FAERS Safety Report 22868844 (Version 2)
Quarter: 2025Q2

REPORT INFORMATION
  Report Type: Spontaneous
  Country: SE (occurrence: SE)
  Receive Date: 20230825
  Receipt Date: 20250624
  Transmission Date: 20250717
  Serious: Yes (Hospitalization)
  Sender: MYLAN
  Company Number: None

PATIENT
  Age: 61 Year
  Sex: Female

DRUGS (16)
  1. ACETAMINOPHEN [Suspect]
     Active Substance: ACETAMINOPHEN
     Indication: Product used for unknown indication
  2. ACETAMINOPHEN [Suspect]
     Active Substance: ACETAMINOPHEN
     Route: 065
  3. ACETAMINOPHEN [Suspect]
     Active Substance: ACETAMINOPHEN
     Route: 065
  4. ACETAMINOPHEN [Suspect]
     Active Substance: ACETAMINOPHEN
  5. ZOPICLONE [Suspect]
     Active Substance: ZOPICLONE
     Indication: Product used for unknown indication
  6. ZOPICLONE [Suspect]
     Active Substance: ZOPICLONE
     Route: 065
  7. ZOPICLONE [Suspect]
     Active Substance: ZOPICLONE
     Route: 065
  8. ZOPICLONE [Suspect]
     Active Substance: ZOPICLONE
  9. FELODIPINE [Suspect]
     Active Substance: FELODIPINE
     Indication: Product used for unknown indication
  10. FELODIPINE [Suspect]
     Active Substance: FELODIPINE
     Route: 065
  11. FELODIPINE [Suspect]
     Active Substance: FELODIPINE
     Route: 065
  12. FELODIPINE [Suspect]
     Active Substance: FELODIPINE
  13. BUPROPION [Suspect]
     Active Substance: BUPROPION
     Indication: Product used for unknown indication
  14. BUPROPION [Suspect]
     Active Substance: BUPROPION
     Route: 065
  15. BUPROPION [Suspect]
     Active Substance: BUPROPION
     Route: 065
  16. BUPROPION [Suspect]
     Active Substance: BUPROPION

REACTIONS (4)
  - Suicide attempt [Recovered/Resolved]
  - Depressed level of consciousness [Recovered/Resolved]
  - Toxicity to various agents [Recovered/Resolved]
  - Intentional overdose [Recovered/Resolved]

NARRATIVE: CASE EVENT DATE: 20230731
